FAERS Safety Report 8191262-6 (Version None)
Quarter: 2012Q1

REPORT INFORMATION
  Report Type: 
  Country: None (occurrence: None)
  Receive Date: 20120221
  Receipt Date: 20111214
  Transmission Date: 20120608
  Serious: No
  Sender: FDA-Public Use
  Company Number: 047774

PATIENT
  Sex: Female
  Weight: 65.3 kg

DRUGS (5)
  1. LEVETIRACETAM [Concomitant]
  2. M.V.I. [Concomitant]
  3. FOLIC ACID [Concomitant]
  4. TEGRETOL [Concomitant]
  5. LACOSAMIDE [Suspect]
     Indication: CONVULSION
     Dosage: (150 MG BID ORAL)
     Route: 048
     Dates: start: 20111209

REACTIONS (7)
  - CONVULSION [None]
  - FALL [None]
  - HEAD INJURY [None]
  - CONTUSION [None]
  - CONFUSIONAL STATE [None]
  - HALLUCINATION [None]
  - TREMOR [None]
